FAERS Safety Report 4383033-3 (Version None)
Quarter: 2004Q2

REPORT INFORMATION
  Report Type: 
  Country: None (occurrence: None)
  Receive Date: 20040526
  Receipt Date: 20040227
  Transmission Date: 20050107
  Serious: Yes (Hospitalization)
  Sender: FDA-Public Use
  Company Number: US_030695164

PATIENT
  Age: 58 Year
  Sex: Male

DRUGS (3)
  1. ZYPREXA [Suspect]
     Dosage: 5 MG/AT BEDTIME
  2. VITAMINS NOS [Concomitant]
  3. WELLBUTRIN [Concomitant]

REACTIONS (2)
  - ATRIAL FIBRILLATION [None]
  - ERECTILE DYSFUNCTION [None]
